FAERS Safety Report 5949930-X (Version None)
Quarter: 2008Q4

REPORT INFORMATION
  Report Type: 
  Country: None (occurrence: None)
  Receive Date: 20081021
  Receipt Date: 20080505
  Transmission Date: 20090506
  Serious: No
  Sender: FDA-Public Use
  Company Number: HQWYE394622OCT03

PATIENT
  Sex: Female

DRUGS (2)
  1. PREMARIN [Suspect]
     Dosage: UNSPECIFIED DOSAGE DAILY FOR A NUMBER OF YEARS, ORAL)
     Route: 048
  2. ESTROGENS SOL/INJ [Suspect]

REACTIONS (3)
  - CEREBROVASCULAR ACCIDENT [None]
  - MYOCARDIAL INFARCTION [None]
  - THROMBOSIS [None]
